FAERS Safety Report 6457828-6 (Version None)
Quarter: 2009Q4

REPORT INFORMATION
  Report Type: 
  Country: None (occurrence: None)
  Receive Date: 20091120
  Receipt Date: 20091106
  Transmission Date: 20100525
  Serious: Yes (Hospitalization)
  Sender: FDA-Public Use
  Company Number: 8054449

PATIENT
  Age: 71 Year
  Sex: Female

DRUGS (4)
  1. KEPPRA [Suspect]
     Indication: EPILEPSY
     Dosage: PO
     Route: 048
  2. ABILIFY [Suspect]
     Indication: DEMENTIA
     Dosage: PO
     Route: 048
     Dates: start: 20090701
  3. TEGRETOL [Suspect]
     Indication: EPILEPSY
     Dosage: PO
     Route: 048
  4. AMLOR [Suspect]
     Indication: HYPERTENSION
     Dosage: PO

REACTIONS (5)
  - BLOOD CREATINE PHOSPHOKINASE INCREASED [None]
  - HAEMATOMA [None]
  - MUSCULOSKELETAL STIFFNESS [None]
  - MYALGIA [None]
  - MYOGLOBIN BLOOD INCREASED [None]
